FAERS Safety Report 7464841-9 (Version None)
Quarter: 2011Q2

REPORT INFORMATION
  Report Type: 
  Country: None (occurrence: None)
  Receive Date: 20110509
  Receipt Date: 20080915
  Transmission Date: 20111010
  Serious: Yes (Death)
  Sender: FDA-Public Use
  Company Number: US-BAYER-200833442NA

PATIENT
  Sex: Female
  Weight: 102.49 kg

DRUGS (16)
  1. TRASYLOL [Suspect]
     Indication: AORTIC VALVE REPLACEMENT
     Dosage: 200 ML PUMP PRIME  AND LOADING DOSE OF 100 ML BOLUS FOLLOWED BY A CONTINUOUS INFUSION
     Route: 042
     Dates: start: 20050916, end: 20050916
  2. SYNTHROID [Concomitant]
  3. HEPARIN [Concomitant]
     Dosage: 5000 UNITS
     Route: 042
     Dates: start: 20050916
  4. INSULIN [Concomitant]
     Dosage: DRIP
     Route: 042
     Dates: start: 20050916
  5. ASPIRIN [Concomitant]
     Dosage: 81MG
     Route: 048
  6. ALLOPURINOL [Concomitant]
     Dosage: 300MG
     Route: 048
  7. NORVASC [Concomitant]
     Dosage: 10MG
     Route: 048
  8. HEPARIN [Concomitant]
     Dosage: 5000UNITS, CARDIAC BYPASS PUMP
     Dates: start: 20050916
  9. ADVAIR DISKUS 100/50 [Concomitant]
     Dosage: 2 PUFFS AS INHALER
     Route: 045
  10. CAPTOPRIL [Concomitant]
     Dosage: 50MG
     Route: 048
  11. ASPIRIN [Concomitant]
     Dosage: 325MG
     Route: 048
  12. DOBUTREX [Concomitant]
  13. INSULIN [Concomitant]
     Dosage: 40 UNITS IN A.M./30 UNITS IN P.M.
     Route: 058
  14. TRASYLOL [Suspect]
     Indication: CORONARY ARTERY BYPASS
  15. PREDNISONE [Concomitant]
     Dosage: 5MG
     Route: 048
  16. CLEOCIN [Concomitant]
     Dosage: 900MG
     Route: 042
     Dates: start: 20050916

REACTIONS (8)
  - UNEVALUABLE EVENT [None]
  - INJURY [None]
  - ANHEDONIA [None]
  - RENAL FAILURE [None]
  - FEAR [None]
  - PAIN [None]
  - DEPRESSION [None]
  - ANXIETY [None]
